FAERS Safety Report 17192232 (Version 2)
Quarter: 2021Q1

REPORT INFORMATION
  Report Type: Other
  Country: CA (occurrence: CA)
  Receive Date: 20191223
  Receipt Date: 20210201
  Transmission Date: 20210419
  Serious: Yes (Hospitalization)
  Sender: FDA-Public Use
  Company Number: CA-APOTEX-2019AP026154

PATIENT
  Age: 47 Year
  Sex: Female

DRUGS (11)
  1. ILARIS [Suspect]
     Active Substance: CANAKINUMAB
     Dosage: 300 MILLIGRAM, Q.M.T.
     Route: 058
  2. ILARIS [Suspect]
     Active Substance: CANAKINUMAB
     Dosage: 150 MILLIGRAM
     Route: 030
  3. ILARIS [Suspect]
     Active Substance: CANAKINUMAB
     Dosage: 150 MILLIGRAM
     Route: 058
  4. ILARIS [Suspect]
     Active Substance: CANAKINUMAB
     Dosage: 300 MILLIGRAM
     Route: 030
  5. ONDANSETRON [Suspect]
     Active Substance: ONDANSETRON
     Dosage: UNK UNK, QD
     Route: 065
  6. ILARIS [Suspect]
     Active Substance: CANAKINUMAB
     Dosage: 150 MILLIGRAM
     Route: 042
  7. TELMISARTAN. [Suspect]
     Active Substance: TELMISARTAN
     Indication: PRODUCT USED FOR UNKNOWN INDICATION
     Dosage: 30 MILLIGRAM
     Route: 065
  8. ONDANSETRON [Suspect]
     Active Substance: ONDANSETRON
     Indication: NAUSEA
     Dosage: UNK UNK, QD
     Route: 048
  9. COLCHICINE. [Suspect]
     Active Substance: COLCHICINE
     Indication: PRODUCT USED FOR UNKNOWN INDICATION
     Dosage: UNK
     Route: 065
  10. ILARIS [Suspect]
     Active Substance: CANAKINUMAB
     Indication: FAMILIAL COLD AUTOINFLAMMATORY SYNDROME
     Dosage: 300 MILLIGRAM
     Route: 058
  11. PREDNISONE. [Concomitant]
     Active Substance: PREDNISONE
     Indication: PRODUCT USED FOR UNKNOWN INDICATION
     Dosage: UNK
     Route: 065

REACTIONS (30)
  - Adrenal disorder [Recovering/Resolving]
  - Ear infection [Recovering/Resolving]
  - Hot flush [Not Recovered/Not Resolved]
  - Headache [Recovering/Resolving]
  - Body temperature increased [Recovering/Resolving]
  - Chills [Not Recovered/Not Resolved]
  - Diarrhoea [Recovering/Resolving]
  - Rhinorrhoea [Not Recovered/Not Resolved]
  - Hypersomnia [Not Recovered/Not Resolved]
  - White blood cell count decreased [Recovering/Resolving]
  - Familial cold autoinflammatory syndrome [Recovering/Resolving]
  - Cough [Not Recovered/Not Resolved]
  - Nasopharyngitis [Not Recovered/Not Resolved]
  - Vomiting [Recovering/Resolving]
  - Gait disturbance [Not Recovered/Not Resolved]
  - Nervousness [Recovering/Resolving]
  - Insomnia [Recovering/Resolving]
  - Fatigue [Recovering/Resolving]
  - Dizziness [Not Recovered/Not Resolved]
  - Colitis [Recovering/Resolving]
  - Feeling cold [Not Recovered/Not Resolved]
  - Malaise [Recovering/Resolving]
  - Hyperhidrosis [Not Recovered/Not Resolved]
  - Abdominal pain upper [Not Recovered/Not Resolved]
  - Pain [Not Recovered/Not Resolved]
  - Nausea [Recovering/Resolving]
  - Weight decreased [Recovering/Resolving]
  - Pain in extremity [Not Recovered/Not Resolved]
  - Anxiety [Recovering/Resolving]
  - Abdominal pain [Recovering/Resolving]
